FAERS Safety Report 10469061 (Version 11)
Quarter: 2018Q4

REPORT INFORMATION
  Report Type: Spontaneous
  Country: DE (occurrence: DE)
  Receive Date: 20140923
  Receipt Date: 20181011
  Transmission Date: 20190204
  Serious: Yes (Other)
  Sender: FDA-Public Use
  Company Number: DE-PFIZER INC-2014258022

PATIENT
  Age: 40 Year
  Sex: Female
  Weight: 77 kg

DRUGS (9)
  1. METFORMIN HCL [Suspect]
     Active Substance: METFORMIN HYDROCHLORIDE
     Indication: TYPE 2 DIABETES MELLITUS
     Dosage: 1000 MG, 2X/DAY; 0 - 6+4DAYS. GESTATIONAL WEEK
     Route: 048
     Dates: start: 20130310, end: 20130425
  2. IODINE. [Suspect]
     Active Substance: IODINE
     Dosage: UNK
  3. XELEVIA [Suspect]
     Active Substance: SITAGLIPTIN PHOSPHATE
     Indication: TYPE 2 DIABETES MELLITUS
     Dosage: 100 MG, DAILY; 0. - 6+4DAYS. GESTATIONAL WEEK
     Route: 048
     Dates: start: 20130310, end: 20130425
  4. METOPROLOL. [Suspect]
     Active Substance: METOPROLOL
     Indication: HYPERTENSION
     Dosage: 47.5 MG, 2X/DAY; 7.4. - 35.3. GESTATIONAL WEEK
     Route: 048
     Dates: start: 20130502, end: 20131113
  5. RAMIPRIL. [Suspect]
     Active Substance: RAMIPRIL
     Indication: HYPERTENSION
     Dosage: 10 MG, DAILY; 0. - 6+4DAY. GESTATIONAL WEEK
     Route: 048
     Dates: start: 20130310, end: 20130425
  6. L-THYROXIN [Suspect]
     Active Substance: LEVOTHYROXINE SODIUM
     Dosage: 75 UG, DAILY; 0. - 35.3. GESTATIONAL WEEK
     Route: 048
     Dates: start: 20130310, end: 20131113
  7. SITAGLIPTIN [Suspect]
     Active Substance: SITAGLIPTIN
     Dosage: UNK
     Route: 065
  8. FOLIC ACID. [Suspect]
     Active Substance: FOLIC ACID
     Dosage: 0 UNK, UNK
     Route: 048
  9. METHYLDOPA. [Suspect]
     Active Substance: METHYLDOPA
     Indication: HYPERTENSION
     Dosage: 250 MG, 4X/DAY; 7.4. - 35.3. GESTATIONAL WEEK
     Route: 048
     Dates: start: 20130502, end: 20131113

REACTIONS (2)
  - Polyhydramnios [Unknown]
  - Placental insufficiency [Unknown]
